FAERS Safety Report 6883301-7 (Version None)
Quarter: 2010Q3

REPORT INFORMATION
  Report Type: 
  Country: None (occurrence: None)
  Receive Date: 20100727
  Receipt Date: 20071004
  Transmission Date: 20110219
  Serious: Yes (Hospitalization, Other)
  Sender: FDA-Public Use
  Company Number: US-PFIZER INC-2006118904

PATIENT
  Sex: Female
  Weight: 85.7 kg

DRUGS (6)
  1. CELEBREX [Suspect]
     Indication: RHEUMATOID ARTHRITIS
     Dates: start: 20000101
  2. VIOXX [Suspect]
     Indication: RHEUMATOID ARTHRITIS
     Dates: start: 20000101, end: 20020308
  3. AMITRIPTYLINE HYDROCHLORIDE [Concomitant]
     Indication: PAIN
     Dates: start: 19990831, end: 20020622
  4. CYCLOBENZAPRINE [Concomitant]
     Indication: PAIN
     Dates: start: 20000329
  5. ULTRAM [Concomitant]
     Indication: PAIN
     Dates: start: 20000323, end: 20020408
  6. TOPROL-XL [Concomitant]
     Indication: HYPERTENSION
     Dates: start: 19991027, end: 20020225

REACTIONS (2)
  - ABDOMINAL PAIN UPPER [None]
  - CEREBROVASCULAR ACCIDENT [None]
